FAERS Safety Report 6091790-3 (Version None)
Quarter: 2009Q1

REPORT INFORMATION
  Report Type: 
  Country: None (occurrence: None)
  Receive Date: 20090225
  Receipt Date: 20080623
  Transmission Date: 20090719
  Serious: No
  Sender: FDA-Public Use
  Company Number: A0734332A

PATIENT
  Age: 55 Year
  Sex: Female

DRUGS (2)
  1. VALTREX [Suspect]
     Indication: GENITAL HERPES
     Dosage: 500MG TWICE PER DAY
     Route: 048
     Dates: start: 20080613, end: 20080617
  2. PRILOSEC [Concomitant]

REACTIONS (1)
  - MUSCULOSKELETAL STIFFNESS [None]
